FAERS Safety Report 21036248 (Version 1)
Quarter: 2022Q3

REPORT INFORMATION
  Report Type: Spontaneous
  Country: US (occurrence: US)
  Receive Date: 20220701
  Receipt Date: 20220701
  Transmission Date: 20221027
  Serious: Yes (Other)
  Sender: FDA-Public Use
  Company Number: US-AMGEN-USASP2022111230

PATIENT

DRUGS (5)
  1. BLINATUMOMAB [Suspect]
     Active Substance: BLINATUMOMAB
     Indication: Acute lymphocytic leukaemia recurrent
     Route: 065
  2. METHOTREXATE [Concomitant]
     Active Substance: METHOTREXATE
     Indication: Acute lymphocytic leukaemia recurrent
  3. CYTARABINE\HYDROCORTISONE\METHOTREXATE [Concomitant]
     Active Substance: CYTARABINE\HYDROCORTISONE\METHOTREXATE
     Indication: Acute lymphocytic leukaemia recurrent
  4. CYTARABINE [Concomitant]
     Active Substance: CYTARABINE
     Indication: Acute lymphocytic leukaemia recurrent
  5. HYDROCORTISONE [Concomitant]
     Active Substance: HYDROCORTISONE
     Indication: Acute lymphocytic leukaemia recurrent

REACTIONS (13)
  - Central nervous system leukaemia [Unknown]
  - Neurotoxicity [Unknown]
  - Hemiparesis [Unknown]
  - Headache [Unknown]
  - Confusional state [Unknown]
  - Asthenia [Unknown]
  - Aphasia [Unknown]
  - Dysarthria [Unknown]
  - Muscle twitching [Unknown]
  - Muscle spasms [Unknown]
  - Tremor [Unknown]
  - Dysgraphia [Unknown]
  - Visual impairment [Unknown]
